FAERS Safety Report 15563762 (Version 1)
Quarter: 2018Q4

REPORT INFORMATION
  Report Type: Spontaneous
  Country: BE (occurrence: BE)
  Receive Date: 20181029
  Receipt Date: 20181029
  Transmission Date: 20190205
  Serious: Yes (Death)
  Sender: FDA-Public Use
  Company Number: BE-ASTRAZENECA-2018SF38972

PATIENT
  Age: 75 Year
  Sex: Female
  Weight: 60 kg

DRUGS (7)
  1. IBRANCE [Suspect]
     Active Substance: PALBOCICLIB
     Indication: BREAST CANCER FEMALE
     Dosage: 125 MG 3 WEEKS 1/DAY + 1 WEEKS NO ADMINISTRATION
     Route: 048
     Dates: start: 20180411
  2. DUOVENT [Concomitant]
     Active Substance: FENOTEROL HYDROBROMIDE
     Dosage: 1.0DF UNKNOWN
     Route: 055
  3. AMLOR [Concomitant]
     Active Substance: AMLODIPINE BESYLATE
     Dosage: 5.0MG UNKNOWN
     Route: 048
  4. CLAVUCID [Concomitant]
     Indication: COUGH
     Dosage: 875MG/125MG
     Route: 048
     Dates: start: 20180814, end: 20180830
  5. CLAVUCID [Concomitant]
     Indication: DYSPNOEA
     Dosage: 875MG/125MG
     Route: 048
     Dates: start: 20180814, end: 20180830
  6. FASLODEX [Suspect]
     Active Substance: FULVESTRANT
     Indication: BREAST CANCER FEMALE
     Dosage: 500 MG FIRST MONTH 1X/2WEEKS
     Route: 030
     Dates: start: 20180411
  7. FLIXOTIDE [Concomitant]
     Active Substance: FLUTICASONE PROPIONATE
     Dosage: 1.0DF UNKNOWN
     Route: 055

REACTIONS (2)
  - Interstitial lung disease [Fatal]
  - Respiratory failure [Fatal]

NARRATIVE: CASE EVENT DATE: 20180831
